FAERS Safety Report 6206689-9 (Version None)
Quarter: 2009Q2

REPORT INFORMATION
  Report Type: 
  Country: None (occurrence: None)
  Receive Date: 20090528
  Receipt Date: 20090521
  Transmission Date: 20091009
  Serious: Yes (Other)
  Sender: FDA-Public Use
  Company Number: HR-WYE-H09466709

PATIENT
  Sex: Female

DRUGS (1)
  1. CONTROLOC [Suspect]
     Indication: DYSPEPSIA
     Route: 048
     Dates: start: 20080501, end: 20080501

REACTIONS (1)
  - GINGIVAL BLEEDING [None]
